FAERS Safety Report 13822260 (Version 1)
Quarter: 2017Q3

REPORT INFORMATION
  Report Type: Spontaneous
  Country: US (occurrence: US)
  Receive Date: 20170801
  Receipt Date: 20170801
  Transmission Date: 20171127
  Serious: Yes (Disabling)
  Sender: FDA-Public Use
  Company Number: None

PATIENT
  Age: 69 Year
  Sex: Female
  Weight: 77.18 kg

DRUGS (9)
  1. ALAGLIPTIN [Concomitant]
  2. ACTOS [Concomitant]
     Active Substance: PIOGLITAZONE HYDROCHLORIDE
  3. GABAPENTIN. [Concomitant]
     Active Substance: GABAPENTIN
  4. ACTOS [Suspect]
     Active Substance: PIOGLITAZONE HYDROCHLORIDE
     Indication: DIABETES MELLITUS
     Dosage: 1 PILL ONCE A DAY BY MOUTH
     Route: 048
     Dates: start: 20170407, end: 20170626
  5. TRADJENTA [Concomitant]
     Active Substance: LINAGLIPTIN
  6. GLIPIZIDE. [Concomitant]
     Active Substance: GLIPIZIDE
  7. VIT. D [Concomitant]
  8. SIMVASTATIN. [Concomitant]
     Active Substance: SIMVASTATIN
  9. LISINOPRIL. [Concomitant]
     Active Substance: LISINOPRIL

REACTIONS (17)
  - Dysgeusia [None]
  - Peripheral swelling [None]
  - Speech disorder [None]
  - Bone pain [None]
  - Fatigue [None]
  - Exercise tolerance decreased [None]
  - Feeling abnormal [None]
  - Tremor [None]
  - Pain in extremity [None]
  - Cough [None]
  - Headache [None]
  - Dyspnoea [None]
  - Abdominal discomfort [None]
  - Musculoskeletal pain [None]
  - Oropharyngeal pain [None]
  - Muscle disorder [None]
  - Bone disorder [None]

NARRATIVE: CASE EVENT DATE: 201704
